FAERS Safety Report 9628051 (Version 2)
Quarter: 2013Q4

REPORT INFORMATION
  Report Type: Spontaneous
  Country: JP (occurrence: JP)
  Receive Date: 20131016
  Receipt Date: 20131211
  Transmission Date: 20140711
  Serious: Yes (Death, Hospitalization, Other)
  Sender: FDA-Public Use
  Company Number: JP-009507513-1310JPN006210

PATIENT
  Age: 64 Year
  Sex: Male
  Weight: 56 kg

DRUGS (3)
  1. CANCIDAS FOR INTRAVENOUS DRIP INFUSION 70MG [Suspect]
     Indication: FEBRILE NEUTROPENIA
     Dosage: 75 MG, QD
     Route: 041
     Dates: start: 20130806, end: 20130806
  2. CANCIDAS FOR INTRAVENOUS DRIP INFUSION 70MG [Suspect]
     Dosage: 50 MG, QD
     Route: 041
     Dates: start: 20130807, end: 20130812
  3. IMURAN (AZATHIOPRINE) [Suspect]
     Indication: COLITIS ULCERATIVE
     Dosage: 50 MG, BID
     Route: 048
     Dates: start: 20121110, end: 20130801

REACTIONS (3)
  - Dementia [Fatal]
  - Multi-organ failure [Fatal]
  - Liver disorder [Recovered/Resolved]
